FAERS Safety Report 9029247 (Version 1)
Quarter: 2013Q1

REPORT INFORMATION
  Report Type: Spontaneous
  Country: US (occurrence: US)
  Receive Date: 20130125
  Receipt Date: 20130125
  Transmission Date: 20140127
  Serious: No
  Sender: FDA-Public Use
  Company Number: US-009507513-1301USA006158

PATIENT
  Sex: Female

DRUGS (3)
  1. PEGINTRON [Suspect]
     Indication: HEPATITIS C
     Dosage: REDIPEN
     Dates: start: 20130106
  2. RIBAVIRIN [Suspect]
     Indication: HEPATITIS C
     Dosage: UNK
     Dates: start: 20130106
  3. TELAPREVIR [Suspect]
     Indication: HEPATITIS C
     Dosage: UNK
     Dates: start: 20130106

REACTIONS (1)
  - Injection site reaction [Unknown]
